FAERS Safety Report 16919055 (Version 24)
Quarter: 2025Q2

REPORT INFORMATION
  Report Type: Report from Study
  Country: CA (occurrence: CA)
  Receive Date: 20191015
  Receipt Date: 20250620
  Transmission Date: 20250716
  Serious: Yes (Death, Life-Threatening, Hospitalization, Other)
  Sender: NOVARTIS
  Company Number: PHHY2018CA089256

PATIENT
  Age: 74 Year
  Sex: Female
  Weight: 70.7 kg

DRUGS (26)
  1. COSENTYX [Suspect]
     Active Substance: SECUKINUMAB
     Indication: Psoriasis
     Dosage: 300 MG, QMO
     Route: 058
     Dates: start: 20171117, end: 20171215
  2. COSENTYX [Suspect]
     Active Substance: SECUKINUMAB
     Route: 058
     Dates: start: 20180215, end: 20180321
  3. COSENTYX [Suspect]
     Active Substance: SECUKINUMAB
     Route: 058
     Dates: start: 20180322, end: 20181016
  4. COSENTYX [Suspect]
     Active Substance: SECUKINUMAB
     Route: 058
     Dates: start: 20190214, end: 20190301
  5. COSENTYX [Suspect]
     Active Substance: SECUKINUMAB
     Route: 058
     Dates: start: 20190401, end: 20190505
  6. COSENTYX [Suspect]
     Active Substance: SECUKINUMAB
     Route: 058
     Dates: start: 20190506, end: 20191001
  7. COSENTYX [Suspect]
     Active Substance: SECUKINUMAB
     Route: 058
     Dates: start: 20190705
  8. COSENTYX [Suspect]
     Active Substance: SECUKINUMAB
     Dosage: 300 MG, QMO
     Route: 058
     Dates: start: 20191018, end: 20191121
  9. COSENTYX [Suspect]
     Active Substance: SECUKINUMAB
     Route: 030
     Dates: start: 20220403
  10. COSENTYX [Suspect]
     Active Substance: SECUKINUMAB
     Dosage: 300 MG, QMO
     Route: 058
     Dates: start: 20191122
  11. ZOPICLONE [Concomitant]
     Active Substance: ZOPICLONE
     Indication: Insomnia
     Route: 065
     Dates: start: 201709
  12. ASPIRIN [Concomitant]
     Active Substance: ASPIRIN
     Indication: Atrial fibrillation
     Route: 065
     Dates: start: 201703
  13. METOPROLOL [Concomitant]
     Active Substance: METOPROLOL
     Indication: Hypertension
     Dosage: 25 MG, BID
     Route: 065
     Dates: start: 201703
  14. LEVOTHYROXINE [Concomitant]
     Active Substance: LEVOTHYROXINE
     Indication: Hypothyroidism
     Dosage: 200 UG, QD
     Route: 065
     Dates: start: 201310
  15. FUROSEMIDE [Concomitant]
     Active Substance: FUROSEMIDE
     Indication: Chronic kidney disease
     Dosage: 80 MG, BID
     Route: 065
     Dates: start: 201709
  16. FUROSEMIDE [Concomitant]
     Active Substance: FUROSEMIDE
     Indication: Glomerulosclerosis
  17. FERROUS SULFATE [Concomitant]
     Active Substance: FERROUS SULFATE
     Indication: Supplementation therapy
     Dosage: 2 DF (300MG), QD
     Route: 065
     Dates: start: 20150630
  18. DOCUSATE SODIUM [Concomitant]
     Active Substance: DOCUSATE SODIUM
     Indication: Constipation
     Dosage: 100 MG, BID
     Route: 065
     Dates: start: 20170627
  19. Replavite [Concomitant]
     Indication: Chronic kidney disease
     Dosage: UNK UNK, QD
     Route: 065
     Dates: start: 20170707
  20. ALLOPURINOL [Concomitant]
     Active Substance: ALLOPURINOL
     Indication: Gout
     Dosage: 100 MG, QD
     Route: 065
     Dates: start: 20170807
  21. BISACODYL [Concomitant]
     Active Substance: BISACODYL
     Indication: Constipation
     Dosage: 2 DF, BID(5MG,OHDS,1-2 TABLETS)
     Route: 065
     Dates: start: 201801
  22. FOSRENOL [Concomitant]
     Active Substance: LANTHANUM CARBONATE
     Indication: Product used for unknown indication
     Route: 065
     Dates: start: 20181204
  23. BETAMETHASONE DIPROPIONATE\CALCIPOTRIENE MONOHYDRATE [Concomitant]
     Active Substance: BETAMETHASONE DIPROPIONATE\CALCIPOTRIENE MONOHYDRATE
     Indication: Product used for unknown indication
     Route: 065
  24. TERAZOSIN [Concomitant]
     Active Substance: TERAZOSIN HYDROCHLORIDE
     Indication: Hypertension
     Route: 065
  25. BISOPROLOL FUMARATE [Concomitant]
     Active Substance: BISOPROLOL FUMARATE
     Indication: Product used for unknown indication
     Route: 065
  26. ACITRETIN [Concomitant]
     Active Substance: ACITRETIN
     Indication: Product used for unknown indication
     Route: 065

REACTIONS (40)
  - Aneurysm [Fatal]
  - Pericardial effusion [Fatal]
  - Pleural effusion [Recovered/Resolved]
  - Pleural effusion [Recovered/Resolved]
  - Cough [Not Recovered/Not Resolved]
  - Dizziness [Recovering/Resolving]
  - Asthenia [Recovering/Resolving]
  - COVID-19 [Recovering/Resolving]
  - Cough [Recovered/Resolved]
  - Oropharyngeal pain [Recovered/Resolved]
  - Diarrhoea [Recovered/Resolved]
  - Vomiting [Recovered/Resolved]
  - Pyrexia [Recovered/Resolved]
  - Cataract [Recovered/Resolved]
  - Cardiac failure congestive [Recovering/Resolving]
  - Nephrolithiasis [Recovered/Resolved]
  - Urinary tract infection [Recovered/Resolved]
  - Haematuria [Recovered/Resolved]
  - Urinary tract infection [Recovered/Resolved]
  - Folliculitis [Recovered/Resolved]
  - Viral infection [Recovered/Resolved]
  - Cough [Recovered/Resolved]
  - Chronic obstructive pulmonary disease [Recovering/Resolving]
  - Prurigo [Not Recovered/Not Resolved]
  - Milia [Recovered/Resolved]
  - Seborrhoeic dermatitis [Recovered/Resolved]
  - Aneurysm [Recovered/Resolved]
  - Cough [Recovered/Resolved]
  - Nausea [Not Recovered/Not Resolved]
  - Gastritis [Not Recovered/Not Resolved]
  - Hyperchlorhydria [Not Recovered/Not Resolved]
  - Ingrowing nail [Recovered/Resolved]
  - Paraesthesia [Not Recovered/Not Resolved]
  - Upper respiratory tract infection [Recovered/Resolved]
  - Rhinitis allergic [Recovered/Resolved]
  - Hyperphosphataemia [Unknown]
  - Rash [Not Recovered/Not Resolved]
  - Hyperparathyroidism [Not Recovered/Not Resolved]
  - Urinary tract infection [Recovered/Resolved]
  - Incorrect route of product administration [Unknown]

NARRATIVE: CASE EVENT DATE: 20180102
